FAERS Safety Report 24569207 (Version 1)
Quarter: 2024Q4

REPORT INFORMATION
  Report Type: Spontaneous
  Country: JP (occurrence: JP)
  Receive Date: 20241031
  Receipt Date: 20241031
  Transmission Date: 20250114
  Serious: Yes (Hospitalization, Other)
  Sender: BOEHRINGER INGELHEIM
  Company Number: JP-NBI-2024-BI-060231

PATIENT
  Age: 81 Year
  Sex: Male
  Weight: 69.3 kg

DRUGS (2)
  1. JARDIANCE [Suspect]
     Active Substance: EMPAGLIFLOZIN
     Indication: Diabetes mellitus
     Dosage: DAILY DOSE: 10 MILLIGRAM(S)
     Route: 048
  2. SITAGLIPTIN PHOSPHATE [Concomitant]
     Active Substance: SITAGLIPTIN PHOSPHATE
     Indication: Diabetes mellitus
     Route: 048

REACTIONS (2)
  - Euglycaemic diabetic ketoacidosis [Unknown]
  - Gastric cancer [Unknown]
